FAERS Safety Report 15327064 (Version 1)
Quarter: 2018Q3

REPORT INFORMATION
  Report Type: Spontaneous
  Country: GB (occurrence: GB)
  Receive Date: 20180828
  Receipt Date: 20180828
  Transmission Date: 20181010
  Serious: Yes (Disabling, Other)
  Sender: FDA-Public Use
  Company Number: GB-PFIZER INC-2018341208

PATIENT
  Age: 49 Year
  Sex: Male
  Weight: 105 kg

DRUGS (5)
  1. RANITIDINE HYDROCHLORIDE. [Concomitant]
     Active Substance: RANITIDINE HYDROCHLORIDE
  2. PREGABALIN. [Suspect]
     Active Substance: PREGABALIN
     Indication: NEUROPATHY PERIPHERAL
     Dosage: 50 MG, UNK
     Route: 048
     Dates: start: 20180606, end: 20180707
  3. CODEINE PHOSPHATE [Concomitant]
     Active Substance: CODEINE PHOSPHATE
  4. SALBUTAMOL [Concomitant]
     Active Substance: ALBUTEROL
  5. MORPHINE SULFATE. [Concomitant]
     Active Substance: MORPHINE SULFATE

REACTIONS (3)
  - Ejaculation failure [Recovered/Resolved]
  - Insomnia [Recovered/Resolved]
  - Nightmare [Recovered/Resolved]

NARRATIVE: CASE EVENT DATE: 20180610
